FAERS Safety Report 4919572-3 (Version None)
Quarter: 2006Q1

REPORT INFORMATION
  Report Type: 
  Country: None (occurrence: None)
  Receive Date: 20060222
  Receipt Date: 20060214
  Transmission Date: 20060701
  Serious: Yes (Hospitalization)
  Sender: FDA-Public Use
  Company Number: US-MERCK-0602USA04928

PATIENT
  Age: 74 Year
  Sex: Female

DRUGS (1)
  1. VIOXX [Suspect]
     Route: 048

REACTIONS (6)
  - ANAEMIA [None]
  - DEPRESSION [None]
  - MENTAL DISORDER [None]
  - PSYCHOTIC DISORDER [None]
  - SYNCOPE [None]
  - URINARY TRACT INFECTION [None]
